FAERS Safety Report 9011747 (Version 1)
Quarter: 2012Q4

REPORT INFORMATION
  Report Type: Spontaneous
  Country: US (occurrence: None)
  Receive Date: 20121228
  Receipt Date: 20121228
  Transmission Date: 20130627
  Serious: Yes (Hospitalization, Other)
  Sender: FDA-Public Use
  Company Number: CLCY20120189

PATIENT
  Age: 69 Year
  Sex: Male
  Weight: 87.09 kg

DRUGS (3)
  1. COLCRYS, 0.6 MG [Suspect]
     Indication: GOUT
     Route: 048
     Dates: start: 201205, end: 201205
  2. AMOXICILLIN [Suspect]
     Indication: DRUG USE FOR UNKNOWN INDICATION
     Route: 048
     Dates: start: 201205, end: 2012
  3. ALLOPURINOL [Suspect]
     Indication: DRUG USE FOR UNKNOWN INDICATION
     Route: 048

REACTIONS (1)
  - Stevens-Johnson syndrome [None]
